FAERS Safety Report 25182767 (Version 1)
Quarter: 2025Q2

REPORT INFORMATION
  Report Type: Spontaneous
  Country: US (occurrence: US)
  Receive Date: 20250410
  Receipt Date: 20250410
  Transmission Date: 20250717
  Serious: No
  Sender: OPTINOSE INC
  Company Number: US-OptiNose US, Inc-2024OPT000104

PATIENT
  Age: 26 Year
  Sex: Female

DRUGS (1)
  1. XHANCE [Suspect]
     Active Substance: FLUTICASONE PROPIONATE
     Indication: Product used for unknown indication
     Route: 045
     Dates: start: 20230801, end: 20240701

REACTIONS (4)
  - Therapy interrupted [Unknown]
  - Fatigue [Unknown]
  - Therapeutic response unexpected [Unknown]
  - Rapid eye movements sleep abnormal [Unknown]
